FAERS Safety Report 5612646-3 (Version None)
Quarter: 2008Q1

REPORT INFORMATION
  Report Type: 
  Country: None (occurrence: None)
  Receive Date: 20080204
  Receipt Date: 20080127
  Transmission Date: 20080703
  Serious: Yes (Other)
  Sender: FDA-Public Use
  Company Number: US-AVENTIS-200810548US

PATIENT
  Age: 34 Year
  Sex: Male

DRUGS (1)
  1. ALLEGRA-D 12 HOUR [Suspect]
     Dosage: DOSE: UNK
     Dates: start: 19980101, end: 20080101

REACTIONS (2)
  - HEPATITIS [None]
  - WITHDRAWAL SYNDROME [None]
